FAERS Safety Report 9280516 (Version 1)
Quarter: 2013Q2

REPORT INFORMATION
  Report Type: Spontaneous
  Country: IN (occurrence: IN)
  Receive Date: 20130509
  Receipt Date: 20130509
  Transmission Date: 20140414
  Serious: Yes (Hospitalization)
  Sender: FDA-Public Use
  Company Number: IN-009507513-1303IND013889

PATIENT
  Age: 52 Year
  Sex: 0

DRUGS (3)
  1. VIRAFERONPEG [Suspect]
     Dosage: 80 MICROGRAM, QW
  2. VIRAFERONPEG [Suspect]
     Dosage: UNK
     Dates: start: 201301
  3. REBETOL [Suspect]
     Dosage: UNK

REACTIONS (5)
  - Cellulitis [Unknown]
  - Joint effusion [Unknown]
  - Myositis [Unknown]
  - Muscle atrophy [Unknown]
  - Gait disturbance [Unknown]
